FAERS Safety Report 15061717 (Version 1)
Quarter: 2018Q2

REPORT INFORMATION
  Report Type: Spontaneous
  Country: TR (occurrence: TR)
  Receive Date: 20180625
  Receipt Date: 20180625
  Transmission Date: 20180711
  Serious: Yes (Other)
  Sender: FDA-Public Use
  Company Number: TR-TEVA-2018-TR-909457

PATIENT
  Sex: Female
  Weight: 39 kg

DRUGS (6)
  1. METHYLPHENIDATE. [Suspect]
     Active Substance: METHYLPHENIDATE
     Indication: ATTENTION DEFICIT/HYPERACTIVITY DISORDER
     Dosage: OSMOTIC RELEASE ORAL SYSTEM
     Route: 048
  2. METHYLPHENIDATE. [Suspect]
     Active Substance: METHYLPHENIDATE
     Indication: ATTENTION DEFICIT/HYPERACTIVITY DISORDER
     Dosage: OSMOTIC RELEASE ORAL SYSTEM
     Route: 048
  3. ATOMOXETINE. [Concomitant]
     Active Substance: ATOMOXETINE HYDROCHLORIDE
     Indication: ATTENTION DEFICIT/HYPERACTIVITY DISORDER
     Route: 065
  4. METHYLPHENIDATE. [Suspect]
     Active Substance: METHYLPHENIDATE
     Indication: ATTENTION DEFICIT/HYPERACTIVITY DISORDER
     Dosage: OSMOTIC RELEASE ORAL SYSTEM
     Route: 048
  5. METHYLPHENIDATE. [Suspect]
     Active Substance: METHYLPHENIDATE
     Indication: ATTENTION DEFICIT/HYPERACTIVITY DISORDER
     Dosage: SHORT ACTING IMMEDIATE RELEASE
     Route: 065
  6. METHYLPHENIDATE. [Suspect]
     Active Substance: METHYLPHENIDATE
     Indication: ATTENTION DEFICIT/HYPERACTIVITY DISORDER
     Dosage: SHORT ACTING IMMEDIATE RELEASE
     Route: 065

REACTIONS (4)
  - Tongue biting [Recovered/Resolved]
  - Compulsive lip biting [Recovered/Resolved]
  - Obsessive-compulsive disorder [Recovered/Resolved]
  - Lip ulceration [Recovered/Resolved with Sequelae]
